FAERS Safety Report 5877721-7 (Version None)
Quarter: 2008Q3

REPORT INFORMATION
  Report Type: 
  Country: None (occurrence: None)
  Receive Date: 20080911
  Receipt Date: 20080903
  Transmission Date: 20090109
  Serious: Yes (Other)
  Sender: FDA-Public Use
  Company Number: CA-JNJFOC-20080606665

PATIENT
  Sex: Male
  Weight: 86.18 kg

DRUGS (5)
  1. DURAGESIC-100 [Suspect]
     Route: 062
  2. DURAGESIC-100 [Suspect]
     Indication: PAIN
     Dosage: 1 HALF COVERED 50 UG PATCH EVERY 2 AND A HALF DAYS
     Route: 062
  3. ZYTRAM [Concomitant]
     Indication: BACK PAIN
  4. TRAZODONE HCL [Concomitant]
     Indication: BACK PAIN
  5. LYRICA [Concomitant]
     Indication: FACIAL NEURALGIA

REACTIONS (14)
  - BURNING SENSATION [None]
  - CHEST PAIN [None]
  - DISTURBANCE IN ATTENTION [None]
  - DRUG INEFFECTIVE [None]
  - DYSPNOEA [None]
  - FATIGUE [None]
  - FEELING OF BODY TEMPERATURE CHANGE [None]
  - HYPERHIDROSIS [None]
  - INAPPROPRIATE SCHEDULE OF DRUG ADMINISTRATION [None]
  - INSOMNIA [None]
  - MUSCLE SPASMS [None]
  - SENSORY DISTURBANCE [None]
  - WITHDRAWAL SYNDROME [None]
  - WRONG TECHNIQUE IN DRUG USAGE PROCESS [None]
